FAERS Safety Report 10377629 (Version 1)
Quarter: 2014Q1

REPORT INFORMATION
  Report Type: Spontaneous
  Country: US (occurrence: None)
  Receive Date: 20140306
  Receipt Date: 20140306
  Transmission Date: 20141002
  Serious: Yes (Hospitalization, Other)
  Sender: FDA-Public Use
  Company Number: 163-21880-13031150

PATIENT
  Age: 64 Year
  Sex: Female

DRUGS (14)
  1. REVLIMID (LENALIDOMIDE) (25 MILLIGRAM CAPSULES) [Suspect]
     Indication: PLASMA CELL MYELOMA
     Route: 048
     Dates: start: 201005
  2. NEUPOGEN (FILGRASTIM) [Concomitant]
  3. LORAZEPAM (LORAZEPAM) [Concomitant]
  4. LOTREL (LOTREL) (CAPSULES) [Concomitant]
  5. ASPIRIN LOW DOSE (ACETYLSALICYLIC ACID) (TABLETS) [Concomitant]
  6. CEPTIN (CEFUROXIME AXETIL) (TABLETS) [Concomitant]
  7. VITAMIN D3 (COLECALCIFEROL) (CAPSULES) [Concomitant]
  8. CELEXA (CITALOPRAM HYDROBROMIDE) (TABLETS) [Concomitant]
  9. GABAPENTIN (GABAPENTIN) (CAPSULES) [Concomitant]
  10. NIACIN (NICOTINIC ACID) (TABLETS) [Concomitant]
  11. OXYCODONE (OXYCODONE) (TABLETS) [Concomitant]
  12. PANTOPRAZOLE (PANTOPRAZOLE) (TABLET) [Concomitant]
  13. POTASSIUM CHLORIDE (POTASSIUM CHLORIDE) (CAPSULES) [Concomitant]
  14. FLUID (BARIUM SULFATE) [Concomitant]

REACTIONS (3)
  - Influenza [None]
  - Pneumonia bacterial [None]
  - Neutropenia [None]
